FAERS Safety Report 8512657-4 (Version None)
Quarter: 2012Q3

REPORT INFORMATION
  Report Type: 
  Country: None (occurrence: None)
  Receive Date: 20120716
  Receipt Date: 20120710
  Transmission Date: 20120928
  Serious: Yes (Other)
  Sender: FDA-Public Use
  Company Number: US-PFIZER INC-2012138679

PATIENT
  Sex: Male
  Weight: 68.027 kg

DRUGS (6)
  1. VIAGRA [Suspect]
     Indication: ERECTILE DYSFUNCTION
     Dosage: 100 MG, AS NEEDED
     Route: 048
  2. VIAGRA [Suspect]
     Dosage: 100 MG, TWICE DAILY WITHIN A FOUR HOUR PERIOD
  3. VIAGRA [Suspect]
     Dosage: 25 MG, AS NEEDED
     Route: 048
     Dates: start: 20080101
  4. AMLODIPINE [Concomitant]
     Indication: HYPERTENSION
     Dosage: 10 MG, UNK
  5. BENAZEPRIL [Concomitant]
     Indication: HYPERTENSION
     Dosage: 20 MG, UNK
  6. VIAGRA [Suspect]
     Dosage: 50 MG, AS NEEDED
     Route: 048

REACTIONS (3)
  - INCORRECT DOSE ADMINISTERED [None]
  - DIABETES MELLITUS [None]
  - DRUG INEFFECTIVE [None]
